FAERS Safety Report 16995814 (Version 2)
Quarter: 2019Q4

REPORT INFORMATION
  Report Type: Report from Study
  Country: None (occurrence: JP)
  Receive Date: 20191105
  Receipt Date: 20191113
  Transmission Date: 20200122
  Serious: Yes (Other)
  Sender: FDA-Public Use
  Company Number: JP-KADMON PHARMACEUTICALS, LLC-KAD-201910-01494

PATIENT
  Age: 52 Year
  Sex: Male
  Weight: 58.2 kg

DRUGS (6)
  1. SOVALDI [Suspect]
     Active Substance: SOFOSBUVIR
     Indication: CHRONIC HEPATITIS C
     Dosage: 400 MG
     Route: 048
     Dates: start: 20170424
  2. SOFOSBUVIR [Suspect]
     Active Substance: SOFOSBUVIR
     Indication: CHRONIC HEPATITIS C
     Dosage: 400 MG
     Route: 048
     Dates: start: 20170424, end: 20171008
  3. NORVIR [Concomitant]
     Active Substance: RITONAVIR
  4. RIBAVIRIN. [Suspect]
     Active Substance: RIBAVIRIN
     Indication: CHRONIC HEPATITIS C
     Dosage: 600 MG
     Route: 048
     Dates: start: 20170424, end: 20171008
  5. REYATAZ [Suspect]
     Active Substance: ATAZANAVIR SULFATE
     Route: 048
  6. DESCOVY [Concomitant]
     Active Substance: EMTRICITABINE\TENOFOVIR ALAFENAMIDE FUMARATE

REACTIONS (1)
  - Blood bilirubin unconjugated increased [Recovering/Resolving]

NARRATIVE: CASE EVENT DATE: 20170426
